FAERS Safety Report 15319949 (Version 2)
Quarter: 2018Q4

REPORT INFORMATION
  Report Type: Spontaneous
  Country: TR (occurrence: TR)
  Receive Date: 20180827
  Receipt Date: 20180827
  Transmission Date: 20190204
  Serious: Yes (Disabling)
  Sender: FDA-Public Use
  Company Number: TR-BAUSCH-BL-2018-022952

PATIENT
  Age: 23 Year
  Sex: Female
  Weight: 50 kg

DRUGS (4)
  1. BENZAMYCIN [Suspect]
     Active Substance: BENZOYL PEROXIDE\ERYTHROMYCIN
     Indication: ACNE
     Dosage: NIGHT CREAM
     Route: 061
  2. ALLERSET [Suspect]
     Active Substance: CETIRIZINE HYDROCHLORIDE
     Indication: URTICARIA
  3. ALLERSET [Suspect]
     Active Substance: CETIRIZINE HYDROCHLORIDE
     Indication: RASH
     Route: 048
     Dates: start: 20150910
  4. ALLERSET [Suspect]
     Active Substance: CETIRIZINE HYDROCHLORIDE
     Indication: PRURITUS

REACTIONS (3)
  - Burning sensation [Not Recovered/Not Resolved]
  - Rash [Recovered/Resolved]
  - Swelling [Not Recovered/Not Resolved]

NARRATIVE: CASE EVENT DATE: 20161214
